FAERS Safety Report 11135751 (Version 3)
Quarter: 2015Q2

REPORT INFORMATION
  Report Type: Report from Study
  Country: FR (occurrence: FR)
  Receive Date: 20150526
  Receipt Date: 20150528
  Transmission Date: 20150821
  Serious: Yes (Hospitalization, Other)
  Sender: FDA-Public Use
  Company Number: FR-009507513-1505FRA011726

PATIENT
  Age: 56 Year
  Sex: Male

DRUGS (10)
  1. COPEGUS [Suspect]
     Active Substance: RIBAVIRIN
     Indication: HIV INFECTION
  2. COPEGUS [Suspect]
     Active Substance: RIBAVIRIN
     Indication: HEPATITIS C
     Dosage: MEAN INITIAL DOSE: 714MG/DAY (600-1000).
  3. TACROLIMUS. [Concomitant]
     Active Substance: TACROLIMUS
     Indication: IMMUNOSUPPRESSANT DRUG THERAPY
  4. VIRAFERONPEG [Suspect]
     Active Substance: PEGINTERFERON ALFA-2B
     Indication: HEPATITIS C
     Dosage: 180 MICROGRAM, QW
  5. VIRAFERONPEG [Suspect]
     Active Substance: PEGINTERFERON ALFA-2B
     Indication: HIV INFECTION
  6. REBETOL [Suspect]
     Active Substance: RIBAVIRIN
     Indication: HEPATITIS C
     Dosage: MEAN INITIAL DOSE: 714MG/DAY (600-1000).
     Route: 048
  7. TELAPREVIR [Suspect]
     Active Substance: TELAPREVIR
     Indication: HIV INFECTION
  8. MYCOPHENOLATE MOFETIL. [Concomitant]
     Active Substance: MYCOPHENOLATE MOFETIL
     Indication: IMMUNOSUPPRESSANT DRUG THERAPY
  9. TELAPREVIR [Suspect]
     Active Substance: TELAPREVIR
     Indication: HEPATITIS C
     Dosage: 750 MG THREE TIMES A DAY
  10. REBETOL [Suspect]
     Active Substance: RIBAVIRIN
     Indication: HIV INFECTION

REACTIONS (2)
  - Ophthalmic herpes simplex [Unknown]
  - Anaemia [Unknown]
